FAERS Safety Report 4304850-1 (Version None)
Quarter: 2004Q1

REPORT INFORMATION
  Report Type: 
  Country: None (occurrence: None)
  Receive Date: 20040226
  Receipt Date: 20031217
  Transmission Date: 20041129
  Serious: No
  Sender: FDA-Public Use
  Company Number: US-GLAXOSMITHKLINE-A0443984A

PATIENT

DRUGS (1)
  1. WELLBUTRIN [Suspect]
     Route: 048

REACTIONS (1)
  - BRADYPHRENIA [None]
